FAERS Safety Report 18607276 (Version 2)
Quarter: 2021Q1

REPORT INFORMATION
  Report Type: Spontaneous
  Country: CA (occurrence: CA)
  Receive Date: 20201211
  Receipt Date: 20210125
  Transmission Date: 20210419
  Serious: Yes (Hospitalization, Other)
  Sender: FDA-Public Use
  Company Number: CA-BAYER-2020-266825

PATIENT
  Age: 64 Year
  Sex: Female

DRUGS (48)
  1. DULOXETINE. [Suspect]
     Active Substance: DULOXETINE
  2. FOSAMAX [Suspect]
     Active Substance: ALENDRONATE SODIUM
  3. LACTOBACILLUS ACIDOPHILUS [Suspect]
     Active Substance: LACTOBACILLUS ACIDOPHILUS
  4. OMEGA?3 NOS [Suspect]
     Active Substance: OMEGA-3 FATTY ACIDS
  5. CYMBALTA [Suspect]
     Active Substance: DULOXETINE HYDROCHLORIDE
  6. FOLIC ACID. [Suspect]
     Active Substance: FOLIC ACID
  7. LYRICA [Suspect]
     Active Substance: PREGABALIN
  8. POTASSIUM CHLORIDE. [Suspect]
     Active Substance: POTASSIUM CHLORIDE
  9. SENNOSIDES. [Suspect]
     Active Substance: SENNOSIDES
  10. SULFATRIM [SULFADIAZINE;TRIMETHOPRIM] [Suspect]
     Active Substance: SULFADIAZINE\TRIMETHOPRIM
  11. ANTITHYMOCYTE IMMUNOGLOBULIN [Suspect]
     Active Substance: THYMOCYTE IMMUNE GLOBULIN NOS
  12. ATIVAN [Suspect]
     Active Substance: LORAZEPAM
  13. NOVO?HYDRAZIDE [Suspect]
     Active Substance: HYDROCHLOROTHIAZIDE
  14. PREDNISONE. [Suspect]
     Active Substance: PREDNISONE
  15. VITAMIN B COMPLEX [Suspect]
     Active Substance: CYANOCOBALAMIN\DEXPANTHENOL\NIACINAMIDE\PYRIDOXINE HYDROCHLORIDE\RIBOFLAVIN 5^-PHOSPHATE SODIUM\THIAMINE HYDROCHLORIDE\VITAMIN B COMPLEX
  16. D?ALPHA TOCOPHEROL [Suspect]
     Active Substance: .ALPHA.-TOCOPHEROL, D-
  17. HORSE CHESTNUT EXTRACT [Suspect]
     Active Substance: HORSE CHESTNUT
  18. MYCOPHENOLATE MOFETIL. [Suspect]
     Active Substance: MYCOPHENOLATE MOFETIL
  19. NORTRIPTYLINE HYDROCHLORIDE. [Suspect]
     Active Substance: NORTRIPTYLINE HYDROCHLORIDE
  20. PYRIDOXINE [Suspect]
     Active Substance: PYRIDOXINE
  21. SENNA ALEXANDRINA [Suspect]
     Active Substance: SENNA LEAF
  22. TIZANIDINE HCL [Suspect]
     Active Substance: TIZANIDINE HYDROCHLORIDE
  23. CLARITIN [Suspect]
     Active Substance: LORATADINE
  24. ERGOCALCIFEROL. [Suspect]
     Active Substance: ERGOCALCIFEROL
  25. GLICLAZIDE [Suspect]
     Active Substance: GLICLAZIDE
  26. NICOTINAMIDE [Suspect]
     Active Substance: NIACINAMIDE
  27. TETANUS IMMUNE GLOBULIN (HUMAN) [Suspect]
     Active Substance: HUMAN CLOSTRIDIUM TETANI TOXOID IMMUNE GLOBULIN
  28. VITAMIN C ACID [Suspect]
     Active Substance: ASCORBIC ACID
  29. BACLOFEN. [Suspect]
     Active Substance: BACLOFEN
  30. CREATINE [Suspect]
     Active Substance: CREATINE
  31. SALMO SALAR OIL [Suspect]
     Active Substance: ATLANTIC SALMON OIL
  32. RETINOL [Suspect]
     Active Substance: RETINOL
  33. ZANTAC [Suspect]
     Active Substance: RANITIDINE HYDROCHLORIDE
  34. ALENDRONATE SODIUM. [Suspect]
     Active Substance: ALENDRONATE SODIUM
  35. CALCIUM [Suspect]
     Active Substance: CALCIUM
  36. CALCIUM CARBONATE. [Suspect]
     Active Substance: CALCIUM CARBONATE
  37. DOCUSATE SODIUM. [Suspect]
     Active Substance: DOCUSATE SODIUM
  38. FUROSEMIDE. [Suspect]
     Active Substance: FUROSEMIDE
  39. MELATONIN [Suspect]
     Active Substance: MELATONIN
  40. WARFARIN [Suspect]
     Active Substance: WARFARIN
  41. ZOPICLONE [Suspect]
     Active Substance: ZOPICLONE
  42. ALEVE [Suspect]
     Active Substance: NAPROXEN SODIUM
  43. MOMETASONE FUROATE. [Suspect]
     Active Substance: MOMETASONE FUROATE
  44. ALKA?SELTZER HEARTBURN RELIEFCHEWS [Suspect]
     Active Substance: CALCIUM CARBONATE
  45. HYDROMORPHONE [Suspect]
     Active Substance: HYDROMORPHONE
  46. IMODIUM [Suspect]
     Active Substance: LOPERAMIDE HYDROCHLORIDE
  47. RANITIDINE. [Suspect]
     Active Substance: RANITIDINE
  48. SULFADIAZINE. [Suspect]
     Active Substance: SULFADIAZINE

REACTIONS (5)
  - Coma [Recovered/Resolved]
  - Somnolence [Recovered/Resolved]
  - Underdose [Recovered/Resolved]
  - Gastrooesophageal reflux disease [Recovered/Resolved]
  - Pneumonia aspiration [Recovered/Resolved]
